FAERS Safety Report 5808030-X (Version None)
Quarter: 2008Q3

REPORT INFORMATION
  Report Type: 
  Country: None (occurrence: None)
  Receive Date: 20080708
  Receipt Date: 20080625
  Transmission Date: 20090109
  Serious: Yes (Other)
  Sender: FDA-Public Use
  Company Number: A-CH2008-21045

PATIENT

DRUGS (3)
  1. TRACLEER [Suspect]
     Indication: PULMONARY ARTERIAL HYPERTENSION
     Dosage: ORAL
     Route: 048
  2. LOXAPINE [Suspect]
  3. FLUPHENAZINE [Suspect]

REACTIONS (3)
  - CONDITION AGGRAVATED [None]
  - DELIRIUM [None]
  - DRUG INTERACTION [None]
